FAERS Safety Report 5838257-2 (Version None)
Quarter: 2008Q3

REPORT INFORMATION
  Report Type: 
  Country: None (occurrence: None)
  Receive Date: 20080808
  Receipt Date: 20080730
  Transmission Date: 20090109
  Serious: Yes (Death)
  Sender: FDA-Public Use
  Company Number: AR-AVENTIS-200814027EU

PATIENT
  Age: 69 Year
  Sex: Male
  Weight: 57 kg

DRUGS (1)
  1. ENOXAPARIN SODIUM [Suspect]
     Dosage: DOSE: UNK

REACTIONS (1)
  - ARTERIAL THROMBOSIS [None]
